FAERS Safety Report 5652288-7 (Version None)
Quarter: 2008Q1

REPORT INFORMATION
  Report Type: 
  Country: None (occurrence: None)
  Receive Date: 20080305
  Receipt Date: 20080303
  Transmission Date: 20080703
  Serious: Yes (Death, Other)
  Sender: FDA-Public Use
  Company Number: GB-BOEHRINGER INGELHEIM GMBH, GERMANY-2008-UK-00771UK

PATIENT
  Age: 85 Year
  Sex: Male
  Weight: 56 kg

DRUGS (5)
  1. PERSANTIN (00015/0052R) [Suspect]
     Indication: TRANSIENT ISCHAEMIC ATTACK
     Route: 048
     Dates: start: 20080110, end: 20080112
  2. ASPIRIN [Suspect]
     Indication: TRANSIENT ISCHAEMIC ATTACK
     Route: 048
     Dates: start: 20080110, end: 20080112
  3. SIMVASTATIN [Suspect]
     Indication: TRANSIENT ISCHAEMIC ATTACK
     Route: 048
     Dates: start: 20080110, end: 20080112
  4. PERSANTINE [Concomitant]
     Dates: start: 20070801
  5. SIMVASTATIN [Concomitant]
     Dates: start: 20070801

REACTIONS (3)
  - CEREBRAL HAEMORRHAGE [None]
  - DIZZINESS [None]
  - FALL [None]
